FAERS Safety Report 10931103 (Version 3)
Quarter: 2016Q1

REPORT INFORMATION
  Report Type: Spontaneous
  Country: US (occurrence: US)
  Receive Date: 20150319
  Receipt Date: 20160330
  Transmission Date: 20160525
  Serious: Yes (Other)
  Sender: FDA-Public Use
  Company Number: US-ABBVIE-15P-163-1359981-00

PATIENT
  Age: 42 Year
  Sex: Female
  Weight: 119.86 kg

DRUGS (2)
  1. DEPACON [Suspect]
     Active Substance: VALPROATE SODIUM
     Indication: DEPRESSION
     Route: 048
     Dates: start: 20050304, end: 20050304
  2. DEPAKOTE [Suspect]
     Active Substance: DIVALPROEX SODIUM
     Indication: MIGRAINE
     Route: 048
     Dates: end: 2003

REACTIONS (5)
  - Drug ineffective [Unknown]
  - Weight increased [Unknown]
  - Pharyngeal oedema [Recovered/Resolved]
  - Chest discomfort [Recovered/Resolved]
  - Dyspnoea [Recovered/Resolved]

NARRATIVE: CASE EVENT DATE: 20050304
